FAERS Safety Report 9535404 (Version 1)
Quarter: 2013Q3

REPORT INFORMATION
  Report Type: Spontaneous
  Country: US (occurrence: US)
  Receive Date: 20130918
  Receipt Date: 20130918
  Transmission Date: 20140515
  Serious: Yes (Hospitalization)
  Sender: FDA-Public Use
  Company Number: US-CUBIST PHARMACEUTICALS, INC.-2013CBST000806

PATIENT
  Sex: 0

DRUGS (4)
  1. CUBICIN [Suspect]
     Indication: CELLULITIS
     Dosage: 6.08 MG/KG (10 ML), QD
     Route: 042
     Dates: start: 20130810, end: 20130829
  2. CUBICIN [Suspect]
     Indication: OFF LABEL USE
     Dosage: 750 MG (10 ML), QD
     Route: 042
     Dates: start: 20130810, end: 20130829
  3. ERTAPENEM [Concomitant]
     Indication: CELLULITIS
     Dosage: 1000 MG, QD
     Route: 042
     Dates: start: 20130810, end: 20130829
  4. INSULIN [Concomitant]
     Indication: DIABETES MELLITUS
     Dosage: UNK, UNK
     Route: 058

REACTIONS (2)
  - Cellulitis [Not Recovered/Not Resolved]
  - Pain in extremity [Not Recovered/Not Resolved]
